FAERS Safety Report 24647322 (Version 1)
Quarter: 2024Q4

REPORT INFORMATION
  Report Type: Spontaneous
  Country: FR (occurrence: FR)
  Receive Date: 20241121
  Receipt Date: 20241121
  Transmission Date: 20250114
  Serious: Yes (Death)
  Sender: ELI LILLY AND COMPANY
  Company Number: None

PATIENT
  Age: 68 Year
  Sex: Female
  Weight: 49 kg

DRUGS (2)
  1. CYMBALTA [Suspect]
     Active Substance: DULOXETINE HYDROCHLORIDE
     Indication: Depression
     Dosage: UNK UNK, UNKNOWN
     Route: 065
     Dates: start: 20240624, end: 20241106
  2. ASPIRIN DL-LYSINE [Suspect]
     Active Substance: ASPIRIN DL-LYSINE
     Indication: Abdominal pain
     Dosage: UNK UNK, UNKNOWN
     Route: 065
     Dates: start: 20240624, end: 20241106

REACTIONS (3)
  - Upper gastrointestinal haemorrhage [Fatal]
  - Pancreatic neoplasm [Fatal]
  - Cardiac arrest [Fatal]

NARRATIVE: CASE EVENT DATE: 20241110
